FAERS Safety Report 25377241 (Version 1)
Quarter: 2025Q2

REPORT INFORMATION
  Report Type: Spontaneous
  Country: US (occurrence: US)
  Receive Date: 20250530
  Receipt Date: 20250530
  Transmission Date: 20250716
  Serious: No
  Sender: OTSUKA
  Company Number: US-OTSUKA-2025_000681

PATIENT
  Sex: Female

DRUGS (1)
  1. SAMSCA [Suspect]
     Active Substance: TOLVAPTAN
     Indication: Product used for unknown indication
     Route: 065

REACTIONS (2)
  - Therapy interrupted [Unknown]
  - Inability to afford medication [Unknown]
